FAERS Safety Report 10178198 (Version 1)
Quarter: 2014Q2

REPORT INFORMATION
  Report Type: Spontaneous
  Country: US (occurrence: US)
  Receive Date: 20140519
  Receipt Date: 20140519
  Transmission Date: 20141212
  Serious: No
  Sender: FDA-Public Use
  Company Number: US-009507513-1405USA007220

PATIENT
  Sex: Female

DRUGS (2)
  1. TEMODAR [Suspect]
     Indication: ANAPLASTIC OLIGODENDROGLIOMA
     Dosage: 100MG CAPSULE FOR FIVE DAYS AND THEN OFF FOR 23 OR 28 DAYS
     Route: 048
     Dates: start: 20130123, end: 20130414
  2. TEMODAR [Suspect]
     Indication: ANAPLASTIC OLIGODENDROGLIOMA
     Dosage: TWO 5 MG CAPSULES FOR FIVE DAYS AND THEN OFF FOR 23 OR 28 DAYS
     Route: 048
     Dates: start: 20130123, end: 20130414

REACTIONS (1)
  - Drug ineffective [Unknown]
